FAERS Safety Report 25525542 (Version 1)
Quarter: 2025Q3

REPORT INFORMATION
  Report Type: Spontaneous
  Country: MY (occurrence: MY)
  Receive Date: 20250707
  Receipt Date: 20250707
  Transmission Date: 20251020
  Serious: Yes (Hospitalization)
  Sender: MYLAN
  Company Number: MY-MYLANLABS-2025M1055178

PATIENT
  Age: 49 Year
  Sex: Male

DRUGS (44)
  1. ETOPOSIDE [Suspect]
     Active Substance: ETOPOSIDE
     Indication: Diffuse large B-cell lymphoma stage IV
  2. ETOPOSIDE [Suspect]
     Active Substance: ETOPOSIDE
     Route: 065
  3. ETOPOSIDE [Suspect]
     Active Substance: ETOPOSIDE
     Route: 065
  4. ETOPOSIDE [Suspect]
     Active Substance: ETOPOSIDE
  5. CYCLOPHOSPHAMIDE [Suspect]
     Active Substance: CYCLOPHOSPHAMIDE
     Indication: Diffuse large B-cell lymphoma stage IV
  6. CYCLOPHOSPHAMIDE [Suspect]
     Active Substance: CYCLOPHOSPHAMIDE
     Route: 065
  7. CYCLOPHOSPHAMIDE [Suspect]
     Active Substance: CYCLOPHOSPHAMIDE
     Route: 065
  8. CYCLOPHOSPHAMIDE [Suspect]
     Active Substance: CYCLOPHOSPHAMIDE
  9. DOXORUBICIN [Suspect]
     Active Substance: DOXORUBICIN
     Indication: Diffuse large B-cell lymphoma stage IV
  10. DOXORUBICIN [Suspect]
     Active Substance: DOXORUBICIN
  11. DOXORUBICIN [Suspect]
     Active Substance: DOXORUBICIN
     Route: 065
  12. DOXORUBICIN [Suspect]
     Active Substance: DOXORUBICIN
     Route: 065
  13. DOXORUBICIN [Suspect]
     Active Substance: DOXORUBICIN
  14. DOXORUBICIN [Suspect]
     Active Substance: DOXORUBICIN
  15. DOXORUBICIN [Suspect]
     Active Substance: DOXORUBICIN
     Route: 065
  16. DOXORUBICIN [Suspect]
     Active Substance: DOXORUBICIN
     Route: 065
  17. VINCRISTINE [Suspect]
     Active Substance: VINCRISTINE
     Indication: Diffuse large B-cell lymphoma stage IV
  18. VINCRISTINE [Suspect]
     Active Substance: VINCRISTINE
     Route: 065
  19. VINCRISTINE [Suspect]
     Active Substance: VINCRISTINE
     Route: 065
  20. VINCRISTINE [Suspect]
     Active Substance: VINCRISTINE
  21. BLEOMYCIN [Suspect]
     Active Substance: BLEOMYCIN SULFATE
     Indication: Diffuse large B-cell lymphoma stage IV
     Route: 065
  22. BLEOMYCIN [Suspect]
     Active Substance: BLEOMYCIN SULFATE
  23. BLEOMYCIN [Suspect]
     Active Substance: BLEOMYCIN SULFATE
  24. BLEOMYCIN [Suspect]
     Active Substance: BLEOMYCIN SULFATE
     Route: 065
  25. BLEOMYCIN [Suspect]
     Active Substance: BLEOMYCIN SULFATE
     Route: 065
  26. BLEOMYCIN [Suspect]
     Active Substance: BLEOMYCIN SULFATE
  27. BLEOMYCIN [Suspect]
     Active Substance: BLEOMYCIN SULFATE
  28. BLEOMYCIN [Suspect]
     Active Substance: BLEOMYCIN SULFATE
     Route: 065
  29. PROCARBAZINE [Suspect]
     Active Substance: PROCARBAZINE
     Indication: Diffuse large B-cell lymphoma stage IV
  30. PROCARBAZINE [Suspect]
     Active Substance: PROCARBAZINE
     Route: 065
  31. PROCARBAZINE [Suspect]
     Active Substance: PROCARBAZINE
     Route: 065
  32. PROCARBAZINE [Suspect]
     Active Substance: PROCARBAZINE
  33. PREDNISONE [Suspect]
     Active Substance: PREDNISONE
     Indication: Diffuse large B-cell lymphoma stage IV
  34. PREDNISONE [Suspect]
     Active Substance: PREDNISONE
     Route: 065
  35. PREDNISONE [Suspect]
     Active Substance: PREDNISONE
     Route: 065
  36. PREDNISONE [Suspect]
     Active Substance: PREDNISONE
  37. VINBLASTINE [Suspect]
     Active Substance: VINBLASTINE
     Indication: Diffuse large B-cell lymphoma stage IV
  38. VINBLASTINE [Suspect]
     Active Substance: VINBLASTINE
     Route: 065
  39. VINBLASTINE [Suspect]
     Active Substance: VINBLASTINE
     Route: 065
  40. VINBLASTINE [Suspect]
     Active Substance: VINBLASTINE
  41. DACARBAZINE [Suspect]
     Active Substance: DACARBAZINE
     Indication: Diffuse large B-cell lymphoma stage IV
  42. DACARBAZINE [Suspect]
     Active Substance: DACARBAZINE
     Route: 065
  43. DACARBAZINE [Suspect]
     Active Substance: DACARBAZINE
     Route: 065
  44. DACARBAZINE [Suspect]
     Active Substance: DACARBAZINE

REACTIONS (1)
  - Drug ineffective [Unknown]
